FAERS Safety Report 5798150-0 (Version None)
Quarter: 2008Q2

REPORT INFORMATION
  Report Type: 
  Country: None (occurrence: None)
  Receive Date: 20080623
  Receipt Date: 20080327
  Transmission Date: 20081010
  Serious: Yes (Hospitalization)
  Sender: FDA-Public Use
  Company Number: 08H-163-0314077-00

PATIENT
  Age: 62 Year
  Sex: Female

DRUGS (2)
  1. A-HYDROCORT [Suspect]
     Dosage: 20 MG, SUBCUTANEOUS
     Route: 058
  2. COPAXONE [Suspect]
     Indication: MULTIPLE SCLEROSIS
     Dates: start: 20071022

REACTIONS (1)
  - POST PROCEDURAL COMPLICATION [None]
